FAERS Safety Report 8829914 (Version 4)
Quarter: 2014Q2

REPORT INFORMATION
  Report Type: Spontaneous
  Country: US (occurrence: US)
  Receive Date: 20121008
  Receipt Date: 20140529
  Transmission Date: 20141212
  Serious: Yes (Hospitalization)
  Sender: FDA-Public Use
  Company Number: US-B.I. PHARMACEUTICALS,INC./RIDGEFIELD-2012-BP-24117BP

PATIENT
  Age: 60 Year
  Sex: Female
  Weight: 165.11 kg

DRUGS (22)
  1. PRADAXA [Suspect]
     Indication: ATRIAL FIBRILLATION
     Dosage: 300 MG
     Route: 065
     Dates: start: 20120116, end: 20120313
  2. SYNTHROID [Concomitant]
     Dosage: 200 MCG
     Route: 065
     Dates: start: 2008, end: 2012
  3. LISINOPRIL [Concomitant]
     Dosage: 20 MG
     Route: 065
     Dates: start: 2008, end: 2012
  4. OMEPRAZOLE [Concomitant]
     Dosage: 40 MG
     Route: 065
     Dates: start: 2008, end: 2012
  5. FOLIC ACID [Concomitant]
     Route: 065
  6. FISH OIL [Concomitant]
     Route: 065
  7. VITAMIN D [Concomitant]
     Route: 065
  8. VITAMIN B6 [Concomitant]
     Route: 065
  9. SERTRALINE [Concomitant]
     Dosage: 100 MG
     Route: 065
  10. PRAVASTATIN [Concomitant]
     Dosage: 80 MG
     Route: 065
  11. NEURONTIN [Concomitant]
     Dosage: 800 MG
     Route: 065
  12. ALBUTEROL [Concomitant]
     Dosage: DOSE PER APPLICATION AND DAILY DOSE .083% NEB
     Route: 065
  13. AVELOX [Concomitant]
     Route: 065
  14. FLUTICASONE [Concomitant]
     Route: 065
  15. AMIODARONE [Concomitant]
     Dosage: 400 MG
     Route: 065
  16. ASPIRIN [Concomitant]
     Dosage: 325 MG
     Route: 065
  17. COMBIVENT [Concomitant]
     Route: 065
  18. VICODIN [Concomitant]
     Dosage: DOSE PER APPLICATION AND DAILY DOSE: 5/325
     Route: 065
  19. ADVAIR [Concomitant]
     Dosage: DOSE PER APPLICATION AND DAILY DOSE: 250/50
     Route: 065
  20. GUAIFENESIN [Concomitant]
     Dosage: 600 MG
     Route: 065
  21. LASIX [Concomitant]
     Dosage: 80 MG
     Route: 065
  22. DILTIAZEM [Concomitant]
     Dosage: 240 MG
     Route: 065

REACTIONS (5)
  - Gastrointestinal haemorrhage [Recovered/Resolved]
  - Anaemia [Unknown]
  - Renal failure acute [Recovered/Resolved]
  - Pneumonia [Unknown]
  - Gout [Unknown]
